FAERS Safety Report 13915733 (Version 1)
Quarter: 2017Q3

REPORT INFORMATION
  Report Type: Spontaneous
  Country: US (occurrence: US)
  Receive Date: 20170829
  Receipt Date: 20170829
  Transmission Date: 20171127
  Serious: No
  Sender: FDA-Public Use
  Company Number: US-MYLANLABS-2017M1003324

PATIENT
  Sex: Female
  Weight: 101.59 kg

DRUGS (2)
  1. CARTIA                             /00002701/ [Concomitant]
     Active Substance: ASPIRIN
     Indication: PRODUCT USED FOR UNKNOWN INDICATION
     Dosage: UNK
  2. CLONIDINE TRANSDERMAL SYSTEM [Suspect]
     Active Substance: CLONIDINE
     Indication: ATRIAL FIBRILLATION
     Dosage: UNK
     Dates: start: 2016

REACTIONS (5)
  - Application site discolouration [Unknown]
  - Application site rash [Unknown]
  - Application site dryness [Unknown]
  - Application site pruritus [Unknown]
  - Application site swelling [Unknown]

NARRATIVE: CASE EVENT DATE: 2016
